FAERS Safety Report 5265412-5 (Version None)
Quarter: 2007Q1

REPORT INFORMATION
  Report Type: 
  Country: None (occurrence: None)
  Receive Date: 20070314
  Receipt Date: 20070305
  Transmission Date: 20070707
  Serious: Yes (Other)
  Sender: FDA-Public Use
  Company Number: US-PFIZER INC-2007017404

PATIENT
  Sex: Male
  Weight: 74.8 kg

DRUGS (2)
  1. CHANTIX [Suspect]
     Indication: EX-SMOKER
     Dates: start: 20070201, end: 20070224
  2. TRICOR [Concomitant]

REACTIONS (1)
  - RENAL PAIN [None]
